FAERS Safety Report 11787805 (Version 1)
Quarter: 2015Q4

REPORT INFORMATION
  Report Type: Spontaneous
  Country: US (occurrence: US)
  Receive Date: 20151130
  Receipt Date: 20151130
  Transmission Date: 20160305
  Serious: No
  Sender: FDA-Public Use
  Company Number: US-MISSION PHARMACAL COMPANY-1044810

PATIENT
  Age: 28 Year
  Sex: Male

DRUGS (1)
  1. THIOLA [Suspect]
     Active Substance: TIOPRONIN
     Indication: NEPHROLITHIASIS
     Dates: start: 20141008

REACTIONS (4)
  - Blood glucose increased [Unknown]
  - White blood cell count increased [Unknown]
  - Arthralgia [Unknown]
  - Nephrolithiasis [Recovering/Resolving]
